FAERS Safety Report 7220598-8 (Version None)
Quarter: 2011Q1

REPORT INFORMATION
  Report Type: 
  Country: None (occurrence: None)
  Receive Date: 20110111
  Receipt Date: 20110104
  Transmission Date: 20110831
  Serious: Yes (Hospitalization, Other)
  Sender: FDA-Public Use
  Company Number: BR-PFIZER INC-BR-WYE-H09194409

PATIENT
  Age: 37 Year
  Sex: Male
  Weight: 63 kg

DRUGS (10)
  1. PREDNISONE [Concomitant]
     Dosage: 10 MG, 1X/DAY
     Route: 048
     Dates: start: 20090901, end: 20100416
  2. SIROLIMUS [Suspect]
     Indication: RENAL TRANSPLANT
     Dosage: 5 MG, 1X/DAY
     Route: 048
     Dates: start: 20090319, end: 20090512
  3. PREDNISONE [Concomitant]
     Indication: RENAL TRANSPLANT
     Dosage: 15 MG, 1X/DAY
     Route: 048
     Dates: start: 20090311, end: 20090813
  4. PREDNISONE [Concomitant]
     Dosage: 7.5 MG, 1X/DAY
     Route: 048
     Dates: start: 20100417, end: 20100616
  5. SIROLIMUS [Suspect]
     Dosage: 4 MG, 1X/DAY
     Route: 048
     Dates: start: 20090513, end: 20100305
  6. MYFORTIC [Suspect]
     Indication: PROPHYLAXIS AGAINST TRANSPLANT REJECTION
     Dosage: 1440 MG, 1X/DAY
     Route: 048
     Dates: start: 20081225, end: 20090512
  7. PREDNISONE [Concomitant]
     Dosage: 12.5 MG, 1X/DAY
     Route: 048
     Dates: start: 20090814, end: 20090831
  8. TACROLIMUS [Concomitant]
     Dosage: 2 MG, 1X/DAY
     Route: 048
     Dates: start: 20100319
  9. PREDNISONE [Concomitant]
     Dosage: 5 MG, 1X/DAY
     Route: 048
     Dates: start: 20100617
  10. TACROLIMUS [Concomitant]
     Indication: RENAL TRANSPLANT
     Dosage: 4 MG, 1X/DAY
     Route: 048
     Dates: start: 20100303, end: 20100318

REACTIONS (3)
  - RENAL TUBULAR ATROPHY [None]
  - KIDNEY TRANSPLANT REJECTION [None]
  - KIDNEY FIBROSIS [None]
